FAERS Safety Report 5652782-9 (Version None)
Quarter: 2008Q1

REPORT INFORMATION
  Report Type: 
  Country: None (occurrence: None)
  Receive Date: 20080131
  Receipt Date: 20071210
  Transmission Date: 20080703
  Serious: No
  Sender: FDA-Public Use
  Company Number: US200710005280

PATIENT
  Age: 67 Year
  Sex: Female

DRUGS (7)
  1. BYETTA [Suspect]
     Indication: TYPE 2 DIABETES MELLITUS
     Dosage: 5 UG, 2/D, SUBCUTANEOUS; 10 UG, DAILY (1/D), SUBCUTANEOUS; 10 UG, 2/D. SUBCUTANEOUS
     Route: 058
     Dates: start: 20071021, end: 20071021
  2. BYETTA [Suspect]
     Indication: TYPE 2 DIABETES MELLITUS
     Dosage: 5 UG, 2/D, SUBCUTANEOUS; 10 UG, DAILY (1/D), SUBCUTANEOUS; 10 UG, 2/D. SUBCUTANEOUS
     Route: 058
     Dates: start: 20071019, end: 20071101
  3. BYETTA [Suspect]
     Indication: TYPE 2 DIABETES MELLITUS
     Dosage: 5 UG, 2/D, SUBCUTANEOUS; 10 UG, DAILY (1/D), SUBCUTANEOUS; 10 UG, 2/D. SUBCUTANEOUS
     Route: 058
     Dates: start: 20071101
  4. BYETTA [Suspect]
  5. EXENATIDE 5MCG PEN, DISPOSABLE DEVICE (EXENATIDE PEN (5MCG)) PEN,DISPO [Concomitant]
  6. EXENATIDE 10MCG PEN, DISPOSABLE DEVICE (EXENATIDE PEN (10MCG)) PEN,DIS [Concomitant]
  7. GLUCOPHAGE [Concomitant]

REACTIONS (4)
  - INCORRECT DOSE ADMINISTERED [None]
  - NAUSEA [None]
  - NERVOUSNESS [None]
  - VOMITING [None]
